FAERS Safety Report 8080061-1 (Version None)
Quarter: 2012Q1

REPORT INFORMATION
  Report Type: 
  Country: None (occurrence: None)
  Receive Date: 20120128
  Receipt Date: 20110812
  Transmission Date: 20120608
  Serious: No
  Sender: FDA-Public Use
  Company Number: US-ABBOTT-11P-163-0845928-00

PATIENT
  Age: 49 Year
  Sex: Female
  Weight: 61.2 kg

DRUGS (1)
  1. HUMIRA [Suspect]
     Indication: RHEUMATOID ARTHRITIS
     Route: 058
     Dates: start: 20100317

REACTIONS (2)
  - INJECTION SITE SWELLING [None]
  - INJECTION SITE ERYTHEMA [None]
